FAERS Safety Report 14667542 (Version 2)
Quarter: 2018Q2

REPORT INFORMATION
  Report Type: Spontaneous
  Country: US (occurrence: US)
  Receive Date: 20180322
  Receipt Date: 20180403
  Transmission Date: 20180711
  Serious: No
  Sender: FDA-Public Use
  Company Number: US-BRISTOL-MYERS SQUIBB COMPANY-BMS-2018-026133

PATIENT
  Age: 34 Year
  Sex: Female

DRUGS (2)
  1. SPRYCEL [Suspect]
     Active Substance: DASATINIB
     Indication: PRODUCT USED FOR UNKNOWN INDICATION
     Dosage: 1 TAB, QD
     Route: 048
     Dates: start: 20180320
  2. SPRYCEL [Suspect]
     Active Substance: DASATINIB
     Indication: CHRONIC MYELOID LEUKAEMIA
     Dosage: 100 MG, QD
     Route: 048
     Dates: start: 20180204, end: 20180304

REACTIONS (7)
  - Tinnitus [Unknown]
  - Rash [Unknown]
  - Chest pain [Unknown]
  - Headache [Unknown]
  - Dyspnoea [Unknown]
  - Bone pain [Unknown]
  - Migraine [Unknown]

NARRATIVE: CASE EVENT DATE: 20180204
